FAERS Safety Report 4909231-5 (Version None)
Quarter: 2006Q1

REPORT INFORMATION
  Report Type: 
  Country: None (occurrence: None)
  Receive Date: 20060210
  Receipt Date: 20060210
  Transmission Date: 20060701
  Serious: Yes (Other)
  Sender: FDA-Public Use
  Company Number: None

PATIENT
  Sex: Male
  Weight: 92.5338 kg

DRUGS (8)
  1. CYTOXAN [Suspect]
     Indication: PROSTATE CANCER
     Dosage: 763 MG
     Dates: start: 20051214, end: 20051216
  2. FLUDARABINE PHOSPHATE [Suspect]
     Indication: PROSTATE CANCER
     Dosage: 44 MG IV-QD X 3 DAYS
     Route: 042
     Dates: start: 20051214, end: 20051216
  3. GVAX VACCINE [Suspect]
     Indication: PROSTATE CANCER
     Dosage: 6.4 ML SQ EVERY 2 WKS
     Route: 058
     Dates: start: 20051220, end: 20060103
  4. LUPRON [Concomitant]
  5. MEGACE [Concomitant]
  6. COMPAZINE [Concomitant]
  7. VICODIN [Concomitant]
  8. GVAX VACCINE [Suspect]

REACTIONS (2)
  - DISEASE PROGRESSION [None]
  - THROMBOCYTOPENIA [None]
